FAERS Safety Report 19942782 (Version 1)
Quarter: 2021Q4

REPORT INFORMATION
  Report Type: 
  Country: US (occurrence: US)
  Receive Date: 20211012
  Receipt Date: 20211012
  Transmission Date: 20220304
  Serious: No
  Sender: FDA-Public Use
  Company Number: US-C B FLEET CO INC-202101-US-000236

PATIENT
  Sex: Female

DRUGS (1)
  1. MONISTAT 1 COMBINATION PACK [Suspect]
     Active Substance: MICONAZOLE NITRATE
     Indication: Accidental exposure to product
     Dosage: DOSAGE UNKNOWN
     Route: 067

REACTIONS (4)
  - Hypoaesthesia oral [Not Recovered/Not Resolved]
  - Dysgeusia [Not Recovered/Not Resolved]
  - Ocular hyperaemia [Recovered/Resolved]
  - Accidental exposure to product [None]

NARRATIVE: CASE EVENT DATE: 20210118
